FAERS Safety Report 6991836 (Version 5)
Quarter: 2012Q4

REPORT INFORMATION
  Report Type: Spontaneous
  Country: JP (occurrence: None)
  Receive Date: 20090424
  Receipt Date: 20120810
  Transmission Date: 20130627
  Serious: Yes (Death, Other)
  Sender: FDA-Public Use
  Company Number: THYM-1000998

PATIENT
  Age: 8 Year
  Sex: Female
  Weight: 23 kg

DRUGS (9)
  1. THYMOGLOBULIN [Suspect]
     Indication: BONE MARROW CONDITIONING REGIMEN
     Dosage: 50 MG, QD, INTRAVENOUS
     Route: 042
     Dates: start: 20090214, end: 20090215
  2. MELPHALAN HYDROCHLORIDE [Concomitant]
  3. DEXAMETHASONE SODIUM PHOSPHATE [Concomitant]
  4. HYDROXYZINE HYDROCHLORIDE [Concomitant]
  5. PANIPENEM_BETAMIPRON (PANIPENEM_BETAMIPRON) [Concomitant]
  6. TOBRAMYCIN [Concomitant]
  7. ACICLOVIR (ACICLOVIR SODIUM) [Concomitant]
  8. HUMAN RED RED BLOOD CELLS (HUMAN RED BLOOD CELLS) [Concomitant]
  9. PLATELETS, HUMAN BLOOD (PLATELETS, HUMAN BLOOD) [Concomitant]

REACTIONS (13)
  - Multi-organ failure [None]
  - Acute graft versus host disease in skin [None]
  - Epstein-Barr virus infection [None]
  - Mental impairment [None]
  - Oxygen saturation decreased [None]
  - Pleural effusion [None]
  - Urine output decreased [None]
  - Alanine aminotransferase increased [None]
  - Aspartate aminotransferase increased [None]
  - Liver disorder [None]
  - Blood bilirubin increased [None]
  - Cardiac arrest [None]
  - Infusion site reaction [None]
